FAERS Safety Report 5651323-X (Version None)
Quarter: 2008Q1

REPORT INFORMATION
  Report Type: 
  Country: None (occurrence: None)
  Receive Date: 20080131
  Receipt Date: 20071130
  Transmission Date: 20080703
  Serious: No
  Sender: FDA-Public Use
  Company Number: US200711007038

PATIENT
  Age: 16 Year

DRUGS (3)
  1. BYETTA [Suspect]
     Dosage: 5, SUBCUTANEOUS
     Route: 058
  2. METFORMIN HCL [Concomitant]
  3. LISINOPRIL [Concomitant]

REACTIONS (4)
  - BLOOD PRESSURE SYSTOLIC DECREASED [None]
  - DIZZINESS [None]
  - LETHARGY [None]
  - SOMNOLENCE [None]
